FAERS Safety Report 9553516 (Version 1)
Quarter: 2013Q3

REPORT INFORMATION
  Report Type: Spontaneous
  Country: US (occurrence: None)
  Receive Date: 20130725
  Receipt Date: 20130725
  Transmission Date: 20140515
  Serious: Yes (Other)
  Sender: FDA-Public Use
  Company Number: DSU-2013-03375

PATIENT
  Sex: Male

DRUGS (2)
  1. WELCHOL (COLESVELAM) [Suspect]
     Indication: LOW DENSITY LIPOPROTEIN
     Route: 048
  2. WELCHOL (COLESVELAM) [Suspect]
     Indication: GLYCOSYLATED HAEMOGLOBIN
     Route: 048

REACTIONS (1)
  - Pancreatitis [None]
